FAERS Safety Report 8317253-X (Version None)
Quarter: 2012Q2

REPORT INFORMATION
  Report Type: 
  Country: None (occurrence: None)
  Receive Date: 20120425
  Receipt Date: 20120420
  Transmission Date: 20120825
  Serious: Yes (Death, Life-Threatening, Hospitalization, Other)
  Sender: FDA-Public Use
  Company Number: CLOF-10534

PATIENT
  Age: 61 Year
  Sex: Female

DRUGS (27)
  1. DAUNORUBICIN HCL [Suspect]
     Indication: ACUTE MYELOID LEUKAEMIA
     Dates: start: 20070314, end: 20070318
  2. EVOLTRA (CLOFARABINE) SOLUTION FOR INFUSION [Suspect]
     Indication: ACUTE MYELOID LEUKAEMIA
     Dates: start: 20070314, end: 20070318
  3. LORAZEPAM [Concomitant]
  4. LOPERAMIDE [Concomitant]
  5. ORAL BALANCE (XYLITOL, POTASSIUM THIOCYANATE, GLUCOSE OXIDASE, LYSOZYM [Concomitant]
  6. COMBIVENT NEBULIZER [Concomitant]
  7. ITRACONAZOLE [Concomitant]
  8. PHOSPHATE SANDOZ [Concomitant]
  9. CHLORHEXIDINE GLUCONATE [Concomitant]
  10. VANCOMYCIN [Concomitant]
  11. AMPHOTERICIN B [Concomitant]
  12. COTRIM [Concomitant]
  13. COMBIVENT NEBULISER [Concomitant]
  14. OMEPRAZOLE [Concomitant]
  15. POTASSIUM CHLORIDE [Concomitant]
  16. PHOSPHATE SANDOZ [Concomitant]
  17. MYLOTARG [Suspect]
     Indication: ACUTE MYELOID LEUKAEMIA
     Dates: start: 20070314, end: 20070318
  18. ALIMEMAZINE TARTRATE [Concomitant]
  19. MEROPENEM [Concomitant]
  20. CASPOFUNGIN ACETATE [Concomitant]
  21. TEICOPLANIN [Concomitant]
  22. CALCIUM GLUCONATE [Concomitant]
  23. ACYCLOVIR [Concomitant]
  24. CHLORPHENIRAMINE MALEATE [Concomitant]
  25. CLOBESTASOL PROPIONATE [Concomitant]
  26. G-CSF (GRANULOCYTE COLONY STIMULATING FACTOR) [Concomitant]
  27. CALCIUM CARBONATE [Concomitant]

REACTIONS (2)
  - NEUTROPENIA [None]
  - PANCYTOPENIA [None]
